FAERS Safety Report 17412596 (Version 1)
Quarter: 2020Q1

REPORT INFORMATION
  Report Type: Spontaneous
  Country: US (occurrence: US)
  Receive Date: 20200212
  Receipt Date: 20200212
  Transmission Date: 20200409
  Serious: Yes (Hospitalization)
  Sender: FDA-Public Use
  Company Number: None

PATIENT
  Sex: Male

DRUGS (3)
  1. LISINOPRIL, MINOXDIL, ATORVASTATIN, CARVEDILOL, VIRT-CAPS [Concomitant]
  2. CLONIDINE, SEVELAMER [Concomitant]
  3. CINACALCET. [Suspect]
     Active Substance: CINACALCET
     Indication: PRODUCT USED FOR UNKNOWN INDICATION
     Route: 048
     Dates: start: 20170712

REACTIONS (1)
  - Pyrexia [None]
